FAERS Safety Report 7225122-1 (Version None)
Quarter: 2011Q1

REPORT INFORMATION
  Report Type: 
  Country: None (occurrence: None)
  Receive Date: 20110113
  Receipt Date: 20110103
  Transmission Date: 20110831
  Serious: Yes (Congenital Anomaly)
  Sender: FDA-Public Use
  Company Number: A0699865A

PATIENT
  Sex: Female
  Weight: 3.2 kg

DRUGS (2)
  1. PRENATAL VITAMINS [Concomitant]
  2. PAXIL CR [Suspect]
     Indication: DEPRESSION
     Dates: start: 20020501, end: 20030522

REACTIONS (2)
  - DRUG EXPOSURE DURING PREGNANCY [None]
  - CONGENITAL AORTIC VALVE INCOMPETENCE [None]
